FAERS Safety Report 12753824 (Version 1)
Quarter: 2016Q3

REPORT INFORMATION
  Report Type: Spontaneous
  Country: US (occurrence: US)
  Receive Date: 20160915
  Receipt Date: 20160915
  Transmission Date: 20161109
  Serious: No
  Sender: FDA-Public Use
  Company Number: US-ASTELLAS-2015US045708

PATIENT
  Age: 79 Year
  Sex: Male

DRUGS (1)
  1. XTANDI [Suspect]
     Active Substance: ENZALUTAMIDE
     Indication: PROSTATE CANCER
     Route: 048

REACTIONS (6)
  - Memory impairment [Unknown]
  - Drug dose omission [Unknown]
  - Dementia [Unknown]
  - Pain [Unknown]
  - Treatment noncompliance [Unknown]
  - Mental disorder [Unknown]

NARRATIVE: CASE EVENT DATE: 201512
